FAERS Safety Report 9180818 (Version 2)
Quarter: 2013Q2

REPORT INFORMATION
  Report Type: Spontaneous
  Country: US (occurrence: None)
  Receive Date: 20130320
  Receipt Date: 20130408
  Transmission Date: 20140414
  Serious: Yes (Other)
  Sender: FDA-Public Use
  Company Number: AUR-APL-2013-02355

PATIENT
  Age: 65 Year
  Sex: Female
  Weight: 63.5 kg

DRUGS (7)
  1. SIMVASTATIN (SIMVASTATIN) [Suspect]
     Indication: CARDIAC DISORDER
     Route: 048
     Dates: start: 2005
  2. COREG (CARVEDILOL) [Concomitant]
  3. BABY ASPIRIN (ACETYLSALICYLIC ACID) [Concomitant]
  4. METHOTREXATE [Concomitant]
  5. FOLIC ACID [Concomitant]
  6. SPIRONOLACTONE [Concomitant]
  7. LAMICTAL (LAMOTRIGINE) [Concomitant]

REACTIONS (2)
  - Hypersensitivity [None]
  - Product quality issue [None]
